FAERS Safety Report 19246794 (Version 1)
Quarter: 2021Q2

REPORT INFORMATION
  Report Type: Spontaneous
  Country: US (occurrence: GB)
  Receive Date: 20210512
  Receipt Date: 20210512
  Transmission Date: 20210717
  Serious: Yes (Hospitalization, Other)
  Sender: FDA-Public Use
  Company Number: GB-BRECKENRIDGE PHARMACEUTICAL, INC.-2110458

PATIENT
  Age: 70 Year
  Sex: Female

DRUGS (11)
  1. LACTULOSE. [Concomitant]
     Active Substance: LACTULOSE
  2. PHENYTOIN. [Concomitant]
     Active Substance: PHENYTOIN
  3. ASTRAZENECA COVID?19 VACCINE [Concomitant]
     Active Substance: AZD-1222
  4. PACLITAXEL. [Concomitant]
     Active Substance: PACLITAXEL
  5. ONDANSETRON [Concomitant]
     Active Substance: ONDANSETRON
  6. DEXAMETHASONE. [Concomitant]
     Active Substance: DEXAMETHASONE
  7. CO?CODAMOL (CODEINE PHOSPHATE; PARACETAMOL) [Concomitant]
  8. CYCLIZINE (CYCLIZINE) [Concomitant]
     Active Substance: CYCLIZINE
  9. BAXTER HEALTHCARE GLUCOSE (GLUCOSE; ANHYDROUS GLUCOSE; GLUCOSE ANHYDRO [Concomitant]
  10. SODIUM CHLORIDE. [Concomitant]
     Active Substance: SODIUM CHLORIDE
  11. OMEPRAZOLE. [Suspect]
     Active Substance: OMEPRAZOLE

REACTIONS (5)
  - Neutropenia [None]
  - Vaginal haemorrhage [None]
  - Anaemia [None]
  - Pyrexia [None]
  - Thrombocytopenia [None]
